FAERS Safety Report 14570329 (Version 1)
Quarter: 2018Q1

REPORT INFORMATION
  Report Type: Spontaneous
  Country: IT (occurrence: IT)
  Receive Date: 20180226
  Receipt Date: 20180226
  Transmission Date: 20180509
  Serious: Yes (Other)
  Sender: FDA-Public Use
  Company Number: IT-SUN PHARMACEUTICAL INDUSTRIES LTD-2018R1-164345

PATIENT
  Age: 76 Year
  Sex: Male

DRUGS (3)
  1. ZOLEDRONIC ACID [Suspect]
     Active Substance: ZOLEDRONIC ACID
     Indication: PLASMA CELL MYELOMA
     Dosage: 4 MG, QMO
     Route: 042
     Dates: start: 2001
  2. MELPHALAN. [Concomitant]
     Active Substance: MELPHALAN
     Indication: PRODUCT USED FOR UNKNOWN INDICATION
     Dosage: UNK
     Route: 065
     Dates: start: 2001
  3. PREDNISONE. [Concomitant]
     Active Substance: PREDNISONE
     Indication: PRODUCT USED FOR UNKNOWN INDICATION
     Dosage: UNK
     Route: 065
     Dates: start: 2001

REACTIONS (12)
  - Dysphagia [Recovering/Resolving]
  - Osteonecrosis [Recovering/Resolving]
  - Speech disorder [Recovering/Resolving]
  - Debridement [Unknown]
  - Swelling [Recovering/Resolving]
  - Primary sequestrum [Unknown]
  - Tooth extraction [Unknown]
  - Bone swelling [Recovering/Resolving]
  - Trismus [Recovering/Resolving]
  - Bone disorder [Unknown]
  - Oral pain [Recovering/Resolving]
  - Purulent discharge [Recovering/Resolving]
